FAERS Safety Report 5158917-9 (Version None)
Quarter: 2006Q4

REPORT INFORMATION
  Report Type: 
  Country: None (occurrence: None)
  Receive Date: 20061117
  Receipt Date: 20061107
  Transmission Date: 20070319
  Serious: Yes (Hospitalization, Other)
  Sender: FDA-Public Use
  Company Number: HQWYE690304MAY04

PATIENT
  Age: 57 Year
  Sex: Female
  Weight: 87.3 kg

DRUGS (5)
  1. PREMARIN [Suspect]
     Indication: HORMONE REPLACEMENT THERAPY
     Dosage: UNSPECIFIED; ORAL
     Route: 048
     Dates: start: 19920101, end: 20000701
  2. CYCRIN [Suspect]
     Indication: HORMONE REPLACEMENT THERAPY
     Dosage: UNSPECIFIED; ORAL
     Route: 048
     Dates: start: 20000728, end: 20000828
  3. PREMPHASE 14/14 [Suspect]
     Indication: HORMONE REPLACEMENT THERAPY
     Dosage: UNSPECIFIED; ORAL
     Route: 048
     Dates: start: 19980413, end: 19990216
  4. PREMPRO [Suspect]
     Indication: HORMONE REPLACEMENT THERAPY
     Dosage: UNSPECIFIED; ORAL
     Route: 048
     Dates: start: 19970930, end: 20020628
  5. PROVERA [Suspect]
     Indication: HORMONE REPLACEMENT THERAPY
     Dosage: UNSPECIFIED; ORAL
     Route: 048
     Dates: start: 19920128, end: 20000701

REACTIONS (12)
  - BLOOD CHOLESTEROL INCREASED [None]
  - BLOOD TRIGLYCERIDES INCREASED [None]
  - BREAST CANCER METASTATIC [None]
  - CEREBRAL ATROPHY [None]
  - CEREBROVASCULAR ACCIDENT [None]
  - INFLAMMATORY CARCINOMA OF THE BREAST [None]
  - JUGULAR VEIN THROMBOSIS [None]
  - LYMPHADENOPATHY [None]
  - OESTROGEN RECEPTOR ASSAY POSITIVE [None]
  - OPTIC DISC DRUSEN [None]
  - OPTIC ISCHAEMIC NEUROPATHY [None]
  - PROGESTERONE RECEPTOR ASSAY POSITIVE [None]
